FAERS Safety Report 6533283-2 (Version None)
Quarter: 2010Q1

REPORT INFORMATION
  Report Type: 
  Country: None (occurrence: None)
  Receive Date: 20100111
  Receipt Date: 20091222
  Transmission Date: 20100710
  Serious: Yes (Hospitalization)
  Sender: FDA-Public Use
  Company Number: JP-MERCK-0912USA03374B1

PATIENT
  Sex: Male
  Weight: 3 kg

DRUGS (8)
  1. ELAVIL [Suspect]
     Dosage: DOSAGE IS UNCERTAIN DURING A DAY
     Route: 064
  2. AMOXAN [Concomitant]
     Dosage: DOSAGE IS UNCERTAIN DURING A DAY
     Route: 064
  3. NITRAZEPAM [Concomitant]
     Dosage: DOSAGE IS UNCERTAIN DURING A DAY
     Route: 064
  4. BROMAZEPAM [Concomitant]
     Dosage: DOSAGE IS UNCERTAIN DURING A DAY
     Route: 064
  5. ETIZOLAM [Concomitant]
     Dosage: DOSAGE IS UNCERTAIN DURING A DAY
     Route: 064
  6. TRAZODONE HYDROCHLORIDE [Concomitant]
     Dosage: DOSAGE IS UNCERTAIN DURING A DAY
     Route: 064
  7. FLUNITRAZEPAM [Concomitant]
     Dosage: DOSAGE IS UNCERTAIN DURING A DAY
     Route: 064
  8. PAXIL [Concomitant]
     Dosage: DOSAGE IS UNCERTAIN DURING A DAY
     Route: 064

REACTIONS (5)
  - APNOEA [None]
  - FEEDING DISORDER NEONATAL [None]
  - HYPOTONIA [None]
  - IRRITABILITY [None]
  - RESPIRATORY DEPRESSION [None]
